FAERS Safety Report 6880908-8 (Version None)
Quarter: 2010Q3

REPORT INFORMATION
  Report Type: 
  Country: None (occurrence: None)
  Receive Date: 20100728
  Receipt Date: 20100714
  Transmission Date: 20110219
  Serious: Yes (Death)
  Sender: FDA-Public Use
  Company Number: JP-GENENTECH-300624

PATIENT
  Sex: Female
  Weight: 57 kg

DRUGS (25)
  1. OMALIZUMAB [Suspect]
     Indication: ASTHMA
     Dosage: 150 MG, 1/MONTH
     Route: 058
     Dates: start: 20090702, end: 20100114
  2. OMALIZUMAB [Suspect]
     Dosage: 150 MG, 1/MONTH
     Route: 058
     Dates: start: 20090730
  3. OMALIZUMAB [Suspect]
     Dosage: 150 MG, 1/MONTH
     Route: 058
     Dates: start: 20090827
  4. OMALIZUMAB [Suspect]
     Dosage: 150 MG, 1/MONTH
     Route: 058
     Dates: start: 20090924
  5. OMALIZUMAB [Suspect]
     Dosage: 150 MG, 1/MONTH
     Route: 058
     Dates: start: 20091022
  6. OMALIZUMAB [Suspect]
     Dosage: 150 MG, 1/MONTH
     Route: 058
     Dates: start: 20091119
  7. OMALIZUMAB [Suspect]
     Dosage: 150 MG, 1/MONTH
     Route: 058
     Dates: start: 20091217
  8. OMALIZUMAB [Suspect]
     Dosage: 150 MG, 1/MONTH
     Route: 058
     Dates: start: 20100114
  9. PULMICORT [Concomitant]
     Indication: PRODUCT USED FOR UNKNOWN INDICATION
     Dosage: UNK
     Dates: start: 20090108
  10. SINGULAIR [Concomitant]
     Indication: PRODUCT USED FOR UNKNOWN INDICATION
     Dosage: UNK
     Dates: start: 20090102
  11. RIZABEN [Concomitant]
     Indication: PRODUCT USED FOR UNKNOWN INDICATION
  12. UNIPHYL [Concomitant]
     Indication: PRODUCT USED FOR UNKNOWN INDICATION
     Dosage: UNK
     Dates: start: 20090102
  13. PREDONINE [Concomitant]
     Indication: PRODUCT USED FOR UNKNOWN INDICATION
     Dosage: UNK
     Dates: start: 20090102
  14. VASOLAN [Concomitant]
     Indication: PRODUCT USED FOR UNKNOWN INDICATION
     Dosage: UNK
     Dates: start: 20090102
  15. LASIX [Concomitant]
     Indication: PRODUCT USED FOR UNKNOWN INDICATION
     Dosage: UNK
     Dates: start: 20090102
  16. COTRIM [Concomitant]
     Indication: PRODUCT USED FOR UNKNOWN INDICATION
     Dosage: UNK
     Dates: start: 20090102
  17. TAKEPRON [Concomitant]
     Indication: PRODUCT USED FOR UNKNOWN INDICATION
     Dosage: UNK
     Dates: start: 20090102
  18. MAGNESIUM OXIDE [Concomitant]
     Indication: PRODUCT USED FOR UNKNOWN INDICATION
     Dosage: UNK
     Dates: start: 20090102
  19. CANDESARTAN CILEXETIL [Concomitant]
     Indication: PRODUCT USED FOR UNKNOWN INDICATION
     Dosage: UNK
     Dates: start: 20090108
  20. CRESTOR [Concomitant]
     Indication: PRODUCT USED FOR UNKNOWN INDICATION
     Dosage: UNK
     Dates: start: 20090108
  21. NOVORAPID [Concomitant]
     Indication: PRODUCT USED FOR UNKNOWN INDICATION
     Dosage: UNK
     Dates: start: 20090102
  22. ACTOS [Concomitant]
     Indication: PRODUCT USED FOR UNKNOWN INDICATION
     Dosage: UNK
     Dates: start: 20090102
  23. DIGOSIN [Concomitant]
     Indication: PRODUCT USED FOR UNKNOWN INDICATION
     Dosage: UNK
     Dates: start: 20090430
  24. ALLOPURINOL [Concomitant]
     Indication: PRODUCT USED FOR UNKNOWN INDICATION
     Dosage: UNK
     Dates: start: 20090924
  25. MUCODYNE [Concomitant]
     Indication: PRODUCT USED FOR UNKNOWN INDICATION

REACTIONS (15)
  - ASTHMA [None]
  - BLOOD ALBUMIN DECREASED [None]
  - BLOOD CREATININE INCREASED [None]
  - BLOOD LACTATE DEHYDROGENASE INCREASED [None]
  - BLOOD UREA INCREASED [None]
  - CARDIAC ARREST [None]
  - DRUG INEFFECTIVE [None]
  - HAEMOGLOBIN DECREASED [None]
  - NEUROSENSORY HYPOACUSIS [None]
  - PRODUCTIVE COUGH [None]
  - PROTEIN TOTAL DECREASED [None]
  - RED BLOOD CELL COUNT DECREASED [None]
  - STATUS ASTHMATICUS [None]
  - TRACHEAL STENOSIS [None]
  - WHITE BLOOD CELL COUNT INCREASED [None]
